FAERS Safety Report 9254853 (Version 1)
Quarter: 2013Q2

REPORT INFORMATION
  Report Type: Spontaneous
  Country: US (occurrence: None)
  Receive Date: 20130418
  Receipt Date: 20130418
  Transmission Date: 20140414
  Serious: Yes (Hospitalization, Other)
  Sender: FDA-Public Use
  Company Number: AUR-APL-2013-03191

PATIENT
  Age: 75 Year
  Sex: Male
  Weight: 39.46 kg

DRUGS (4)
  1. CLARITHROMYCIN (CLARITHROMYCIN) [Suspect]
     Indication: MYCOBACTERIUM AVIUM COMPLEX INFECTION
  2. MYCOBUTIN [Suspect]
  3. ETHAMBUTOL [Suspect]
  4. WARFARIN (WARFARIN) [Concomitant]

REACTIONS (4)
  - Dyspnoea [None]
  - Mycobacterium avium complex infection [None]
  - Atrial fibrillation [None]
  - Chronic obstructive pulmonary disease [None]
